FAERS Safety Report 5897297-8 (Version None)
Quarter: 2008Q3

REPORT INFORMATION
  Report Type: 
  Country: None (occurrence: None)
  Receive Date: 20080902
  Receipt Date: 20080711
  Transmission Date: 20090109
  Serious: Yes (Hospitalization)
  Sender: FDA-Public Use
  Company Number: 174278USA

PATIENT
  Age: 34 Year
  Sex: Female

DRUGS (2)
  1. VENLAFAXINE HYDROCHLORIDE [Suspect]
     Dosage: 150 MG (75 MG,2 IN 1 D),ORAL
     Route: 048
     Dates: start: 20080619, end: 20080622
  2. ZOLPIDEM TARTRATE [Concomitant]

REACTIONS (3)
  - HYPERHIDROSIS [None]
  - NAUSEA [None]
  - VOMITING [None]
